FAERS Safety Report 13084054 (Version 6)
Quarter: 2017Q1

REPORT INFORMATION
  Report Type: Spontaneous
  Country: GB (occurrence: GB)
  Receive Date: 20170104
  Receipt Date: 20170228
  Transmission Date: 20170428
  Serious: Yes (Death, Hospitalization, Other)
  Sender: FDA-Public Use
  Company Number: GB-MYLANLABS-2017M1000070

PATIENT

DRUGS (5)
  1. CLOZARIL [Suspect]
     Active Substance: CLOZAPINE
     Dosage: UNK
     Route: 048
     Dates: end: 20161024
  2. CLOZARIL [Suspect]
     Active Substance: CLOZAPINE
     Dosage: 6 MG, UNK
     Route: 048
     Dates: start: 2016
  3. CLOZARIL [Suspect]
     Active Substance: CLOZAPINE
     Dosage: UNK
     Route: 048
     Dates: start: 201307
  4. CLOZARIL [Suspect]
     Active Substance: CLOZAPINE
     Indication: SCHIZOPHRENIA
     Dosage: UNK
     Route: 048
     Dates: start: 20010209
  5. CLOZARIL [Suspect]
     Active Substance: CLOZAPINE
     Dosage: 4 MG, UNK
     Route: 048
     Dates: start: 2016

REACTIONS (9)
  - Starvation [Fatal]
  - Nausea [Unknown]
  - Vomiting [Unknown]
  - Weight decreased [Recovering/Resolving]
  - Refusal of treatment by patient [Unknown]
  - Decreased appetite [Unknown]
  - Malaise [Unknown]
  - Anxiety [Unknown]
  - Chronic hepatitis C [Unknown]

NARRATIVE: CASE EVENT DATE: 2016
